FAERS Safety Report 8836227 (Version 1)
Quarter: 2012Q4

REPORT INFORMATION
  Report Type: Report from Study
  Country: FR (occurrence: FR)
  Receive Date: 20121011
  Receipt Date: 20121011
  Transmission Date: 20130627
  Serious: Yes (Hospitalization)
  Sender: FDA-Public Use
  Company Number: FR-GLAXOSMITHKLINE-B0836710A

PATIENT

DRUGS (2)
  1. NICOTINE [Suspect]
     Indication: EX-TOBACCO USER
     Dosage: 21MG per day
     Route: 062
  2. UNKNOWN DRUG [Suspect]
     Indication: EX-TOBACCO USER
     Dosage: 5MG per day

REACTIONS (2)
  - Convulsion [Unknown]
  - Loss of consciousness [Unknown]
